FAERS Safety Report 24050347 (Version 1)
Quarter: 2024Q3

REPORT INFORMATION
  Report Type: Spontaneous
  Country: US (occurrence: US)
  Receive Date: 20240704
  Receipt Date: 20240704
  Transmission Date: 20241017
  Serious: Yes (Hospitalization)
  Sender: AUROBINDO
  Company Number: US-AUROBINDO-AUR-APL-2024-032042

PATIENT
  Age: 92 Year
  Sex: Male

DRUGS (2)
  1. SEVELAMER CARBONATE [Suspect]
     Active Substance: SEVELAMER CARBONATE
     Indication: Chronic kidney disease
     Dosage: 800 MILLIGRAM, 3 TIMES A DAY
     Route: 048
  2. SEVELAMER CARBONATE [Suspect]
     Active Substance: SEVELAMER CARBONATE
     Indication: Acute kidney injury

REACTIONS (2)
  - Oesophagitis [Unknown]
  - Gastrointestinal injury [Unknown]
